FAERS Safety Report 10301431 (Version 1)
Quarter: 2014Q3

REPORT INFORMATION
  Report Type: Spontaneous
  Country: IN (occurrence: IN)
  Receive Date: 20140714
  Receipt Date: 20140714
  Transmission Date: 20150326
  Serious: Yes (Other)
  Sender: FDA-Public Use
  Company Number: IN-MYLANLABS-2014S1015847

PATIENT
  Age: 24 Year
  Sex: Female

DRUGS (5)
  1. TRAMADOL [Suspect]
     Active Substance: TRAMADOL
     Indication: LIGAMENT SPRAIN
     Dosage: 50MG, PRESCRIBED ON AN AS NEEDED BASIS
     Route: 065
  2. TRAMADOL [Suspect]
     Active Substance: TRAMADOL
     Indication: DRUG ABUSE
     Dosage: 50MG, PRESCRIBED ON AN AS NEEDED BASIS
     Route: 065
  3. TRAMADOL [Suspect]
     Active Substance: TRAMADOL
     Indication: DRUG ABUSE
     Dosage: 800MG DAILY, OVER A PERIOD OF 7 MONTHS
     Route: 065
  4. TRAMADOL [Suspect]
     Active Substance: TRAMADOL
     Indication: LIGAMENT SPRAIN
     Dosage: 800MG DAILY, OVER A PERIOD OF 7 MONTHS
     Route: 065
  5. DICLOFENAC [Concomitant]
     Active Substance: DICLOFENAC
     Indication: LIGAMENT SPRAIN
     Route: 065

REACTIONS (9)
  - Memory impairment [Unknown]
  - Decreased activity [Unknown]
  - Drug withdrawal syndrome [Recovered/Resolved]
  - Drug dependence [Recovered/Resolved]
  - Drug abuse [Recovered/Resolved]
  - Lethargy [Unknown]
  - Depressed mood [Unknown]
  - Speech disorder [Unknown]
  - Disturbance in attention [Unknown]
